FAERS Safety Report 24432134 (Version 3)
Quarter: 2025Q3

REPORT INFORMATION
  Report Type: Spontaneous
  Country: US (occurrence: US)
  Receive Date: 20241014
  Receipt Date: 20250912
  Transmission Date: 20251020
  Serious: Yes (Hospitalization, Other)
  Sender: SANOFI AVENTIS
  Company Number: US-SA-2024SA263405

PATIENT
  Age: 60 Year
  Sex: Female
  Weight: 100.82 kg

DRUGS (33)
  1. DUPIXENT [Suspect]
     Active Substance: DUPILUMAB
     Indication: Asthma
     Route: 058
     Dates: start: 20240917, end: 20240917
  2. DUPIXENT [Suspect]
     Active Substance: DUPILUMAB
     Dosage: 300 MG, QOW
     Route: 058
  3. TIZANIDINE HYDROCHLORIDE [Concomitant]
     Active Substance: TIZANIDINE HYDROCHLORIDE
  4. PROTONIX [Concomitant]
     Active Substance: PANTOPRAZOLE SODIUM
  5. SPIRONOLACTONE [Concomitant]
     Active Substance: SPIRONOLACTONE
  6. MIRALAX [Concomitant]
     Active Substance: POLYETHYLENE GLYCOL 3350
  7. ALBUTEROL\IPRATROPIUM [Concomitant]
     Active Substance: ALBUTEROL\IPRATROPIUM
  8. LINZESS [Concomitant]
     Active Substance: LINACLOTIDE
  9. PRAVASTATIN SODIUM [Concomitant]
     Active Substance: PRAVASTATIN SODIUM
  10. ACETAMINOPHEN\HYDROCODONE [Concomitant]
     Active Substance: ACETAMINOPHEN\HYDROCODONE
  11. MONTELUKAST SODIUM [Concomitant]
     Active Substance: MONTELUKAST SODIUM
  12. HYDROXYZINE HYDROCHLORIDE [Concomitant]
     Active Substance: HYDROXYZINE HYDROCHLORIDE
  13. FLUTICASONE PROPIONATE [Concomitant]
     Active Substance: FLUTICASONE PROPIONATE
  14. SODIUM CHLORIDE [Concomitant]
     Active Substance: SODIUM CHLORIDE
  15. VITAMIN B12 [Concomitant]
     Active Substance: CYANOCOBALAMIN
  16. VENTOLIN HFA [Concomitant]
     Active Substance: ALBUTEROL SULFATE
  17. MIDODRINE HYDROCHLORIDE [Concomitant]
     Active Substance: MIDODRINE HYDROCHLORIDE
  18. FUROSEMIDE [Concomitant]
     Active Substance: FUROSEMIDE
  19. NADOLOL [Concomitant]
     Active Substance: NADOLOL
  20. ZYRTEC [Concomitant]
     Active Substance: CETIRIZINE HYDROCHLORIDE
  21. FERROUS SULFATE [Concomitant]
     Active Substance: FERROUS SULFATE
  22. METFORMIN [Concomitant]
     Active Substance: METFORMIN HYDROCHLORIDE
  23. ONDANSETRON HYDROCHLORIDE [Concomitant]
     Active Substance: ONDANSETRON HYDROCHLORIDE
  24. MAGNESIUM OXIDE [Concomitant]
     Active Substance: MAGNESIUM OXIDE
  25. LANTUS [Concomitant]
     Active Substance: INSULIN GLARGINE
  26. THEOPHYLLINE [Concomitant]
     Active Substance: THEOPHYLLINE
  27. EPIPEN [Concomitant]
     Active Substance: EPINEPHRINE
  28. SYMBICORT [Concomitant]
     Active Substance: BUDESONIDE\FORMOTEROL FUMARATE DIHYDRATE
  29. NYSTATIN [Concomitant]
     Active Substance: NYSTATIN
  30. TIOTROPIUM BROMIDE [Concomitant]
     Active Substance: TIOTROPIUM BROMIDE
  31. CYANOCOBALAMIN [Concomitant]
     Active Substance: CYANOCOBALAMIN
  32. CONSTULOSE [Concomitant]
     Active Substance: LACTULOSE
  33. MAGNESIUM [Concomitant]
     Active Substance: MAGNESIUM

REACTIONS (8)
  - Pneumonia [Unknown]
  - Bronchitis [Not Recovered/Not Resolved]
  - Cardiac failure congestive [Recovering/Resolving]
  - Pericardial effusion [Recovering/Resolving]
  - Pulmonary oedema [Recovering/Resolving]
  - Dyspnoea [Unknown]
  - COVID-19 [Recovering/Resolving]
  - Immune system disorder [Unknown]

NARRATIVE: CASE EVENT DATE: 20240901
